FAERS Safety Report 9291274 (Version 1)
Quarter: 2013Q2

REPORT INFORMATION
  Report Type: Spontaneous
  Country: AR (occurrence: AR)
  Receive Date: 20130515
  Receipt Date: 20130515
  Transmission Date: 20140414
  Serious: Yes (Other)
  Sender: FDA-Public Use
  Company Number: AR-PFIZER INC-2013146496

PATIENT
  Age: 5 Year
  Sex: Male

DRUGS (1)
  1. GENOTROPIN [Suspect]
     Indication: FOETAL GROWTH RESTRICTION
     Dosage: 0.6 TO 1 MG DAILY
     Dates: start: 20120401, end: 201209

REACTIONS (1)
  - Scarlet fever [Recovered/Resolved]
